FAERS Safety Report 8616059-1 (Version None)
Quarter: 2012Q3

REPORT INFORMATION
  Report Type: 
  Country: None (occurrence: None)
  Receive Date: 20120823
  Receipt Date: 20120813
  Transmission Date: 20120928
  Serious: Yes (Hospitalization)
  Sender: FDA-Public Use
  Company Number: CA-ROCHE-1091564

PATIENT
  Sex: Female

DRUGS (11)
  1. BRICANYL [Concomitant]
  2. ADVIL [Concomitant]
  3. SYMBICORT [Concomitant]
     Route: 065
  4. NASONEX [Concomitant]
  5. SINUS RINSE (UNK INGREDIENTS) [Concomitant]
  6. VENTOLIN [Concomitant]
     Route: 065
  7. NEORAL [Concomitant]
  8. SEPTRA [Concomitant]
  9. XOLAIR [Suspect]
     Indication: ASTHMA
     Route: 058
     Dates: start: 20120716
  10. SINGULAIR [Concomitant]
     Route: 065
  11. CYCLOSPORINE [Concomitant]
     Route: 065

REACTIONS (4)
  - HYPERTENSION [None]
  - ASTHMA [None]
  - PNEUMONIA [None]
  - SINUSITIS [None]
